FAERS Safety Report 17309266 (Version 1)
Quarter: 2020Q1

REPORT INFORMATION
  Report Type: Spontaneous
  Country: FR (occurrence: FR)
  Receive Date: 20200123
  Receipt Date: 20200123
  Transmission Date: 20200409
  Serious: Yes (Other)
  Sender: FDA-Public Use
  Company Number: FR-MYLANLABS-M-EU-2010090396

PATIENT
  Age: 40 Year
  Sex: Male

DRUGS (2)
  1. TRAMADOL. [Suspect]
     Active Substance: TRAMADOL
     Indication: BACK PAIN
     Dosage: 100 MILLIGRAM, QD
  2. TRAMADOL. [Suspect]
     Active Substance: TRAMADOL
     Dosage: 500 MILLIGRAM, QD

REACTIONS (6)
  - Drug abuse [Unknown]
  - Intentional overdose [Unknown]
  - Tic [Unknown]
  - Drug withdrawal syndrome [Unknown]
  - Central nervous system stimulation [Unknown]
  - Drug tolerance [Unknown]
